FAERS Safety Report 19300225 (Version 3)
Quarter: 2021Q3

REPORT INFORMATION
  Report Type: Spontaneous
  Country: PL (occurrence: PL)
  Receive Date: 20210525
  Receipt Date: 20210901
  Transmission Date: 20211014
  Serious: Yes (Hospitalization, Other)
  Sender: FDA-Public Use
  Company Number: NVSC2021PL110195

PATIENT
  Sex: Male

DRUGS (1)
  1. ZOLGENSMA [Suspect]
     Active Substance: ONASEMNOGENE ABEPARVOVEC-XIOI
     Indication: SPINAL MUSCULAR ATROPHY
     Dosage: UNK
     Route: 065

REACTIONS (8)
  - Vomiting [Recovered/Resolved]
  - Decreased appetite [Unknown]
  - Body temperature abnormal [Unknown]
  - Asthenia [Unknown]
  - Hepatic enzyme increased [Unknown]
  - General physical health deterioration [Unknown]
  - Apathy [Unknown]
  - COVID-19 pneumonia [Unknown]
